FAERS Safety Report 5909278-6 (Version None)
Quarter: 2008Q4

REPORT INFORMATION
  Report Type: 
  Country: None (occurrence: None)
  Receive Date: 20081001
  Receipt Date: 20080916
  Transmission Date: 20090506
  Serious: Yes (Life-Threatening)
  Sender: FDA-Public Use
  Company Number: 2008S1017409

PATIENT
  Age: 86 Year
  Sex: Female

DRUGS (9)
  1. TEMERIT (NEBIVOLOL) [Suspect]
     Indication: DRUG USE FOR UNKNOWN INDICATION
     Dosage: 1.25 MG; DAILY; ORAL
     Route: 048
     Dates: start: 20080718, end: 20080724
  2. CORDARONE [Suspect]
     Indication: ATRIAL FIBRILLATION
     Dosage: 200 MG; TWICE A DAY; ORAL
     Route: 048
     Dates: start: 20080724, end: 20080724
  3. LASIX [Concomitant]
  4. TRIATEC [Concomitant]
  5. CIPROFLOXACIN HYDROCHLORIDE [Concomitant]
  6. PREVISCAN [Concomitant]
  7. FOSAMAX [Concomitant]
  8. ROCEPHIN [Concomitant]
  9. BRICANYL [Concomitant]

REACTIONS (4)
  - ATRIAL FIBRILLATION [None]
  - BLOOD PRESSURE DECREASED [None]
  - BRADYCARDIA [None]
  - MALAISE [None]
